FAERS Safety Report 11969336 (Version 1)
Quarter: 2016Q1

REPORT INFORMATION
  Report Type: Report from Study
  Country: IN (occurrence: IN)
  Receive Date: 20160128
  Receipt Date: 20160128
  Transmission Date: 20160526
  Serious: Yes (Hospitalization)
  Sender: FDA-Public Use
  Company Number: IN-ROCHE-1700021

PATIENT
  Age: 46 Year
  Sex: Male

DRUGS (14)
  1. CELLCEPT [Suspect]
     Active Substance: MYCOPHENOLATE MOFETIL\MYCOPHENOLATE MOFETIL HYDROCHLORIDE
     Route: 048
  2. LACTULOSE. [Concomitant]
     Active Substance: LACTULOSE
     Dosage: 30ML ORALLY ONCE A DAY (IN EVENING)
     Route: 048
     Dates: start: 20150928
  3. SULPHAMETHOXAZOLE + TRIMETHOPRIM [Concomitant]
     Active Substance: SULFAMETHOXAZOLE\TRIMETHOPRIM
     Dosage: TABLETS ORALLY ONCE A DAY
     Route: 048
     Dates: start: 20150928
  4. PANTOPRAZOLE [Concomitant]
     Active Substance: PANTOPRAZOLE SODIUM
     Dosage: 40MG ORALLY TWO TIMES A DAY (MORNING AND EVENING)
     Route: 048
     Dates: start: 20150928
  5. ACETAMINOPHEN/TRAMADOL HYDROCHLORIDE [Concomitant]
     Dosage: ORALLY THREE TIMES A DAY
     Route: 048
     Dates: start: 20150928
  6. PREDNISOLONE. [Concomitant]
     Active Substance: PREDNISOLONE
     Route: 048
     Dates: start: 20151007
  7. CELLCEPT [Suspect]
     Active Substance: MYCOPHENOLATE MOFETIL\MYCOPHENOLATE MOFETIL HYDROCHLORIDE
     Indication: RENAL TRANSPLANT
     Route: 048
     Dates: start: 20150928
  8. TACROLIMUS. [Concomitant]
     Active Substance: TACROLIMUS
     Dosage: 3.5MG ORALLY TWO TIMES A DAY (MORNING AND EVENING)
     Route: 048
     Dates: start: 20150928
  9. PREDNISOLONE. [Concomitant]
     Active Substance: PREDNISOLONE
     Route: 048
     Dates: start: 20151008
  10. PRAZOSIN [Concomitant]
     Active Substance: PRAZOSIN
     Dosage: 5MG ORALLY ONCE A DAY (IN AFTERNOON)
     Route: 048
     Dates: start: 20150928
  11. PREDNISOLONE. [Concomitant]
     Active Substance: PREDNISOLONE
     Route: 048
     Dates: start: 20150928
  12. AMLODIPINE [Concomitant]
     Active Substance: AMLODIPINE BESYLATE
     Dosage: 5MG ORALLY TWO TIMES A DAY (MORNING AND EVENING)
     Route: 048
     Dates: start: 20150928
  13. PREDNISOLONE. [Concomitant]
     Active Substance: PREDNISOLONE
     Route: 048
     Dates: start: 20151006
  14. PREDNISOLONE. [Concomitant]
     Active Substance: PREDNISOLONE
     Route: 048

REACTIONS (5)
  - Enteritis infectious [Recovered/Resolved]
  - Blood creatinine increased [Unknown]
  - Hyperchlorhydria [Recovered/Resolved]
  - Diarrhoea [Recovered/Resolved]
  - Dyspepsia [Recovered/Resolved]

NARRATIVE: CASE EVENT DATE: 20151120
